FAERS Safety Report 9504451 (Version 1)
Quarter: 2013Q3

REPORT INFORMATION
  Report Type: Spontaneous
  Country: GB (occurrence: GB)
  Receive Date: 20130906
  Receipt Date: 20130906
  Transmission Date: 20140515
  Serious: Yes (Disabling, Other)
  Sender: FDA-Public Use
  Company Number: GB-PFIZER INC-2013253049

PATIENT
  Age: 68 Year
  Sex: Male

DRUGS (1)
  1. ONDANSETRON HCL [Suspect]
     Dosage: UNK
     Dates: start: 20130821

REACTIONS (1)
  - Erythema [Recovered/Resolved]
